FAERS Safety Report 14917835 (Version 1)
Quarter: 2018Q2

REPORT INFORMATION
  Report Type: Spontaneous
  Country: GB (occurrence: GB)
  Receive Date: 20180521
  Receipt Date: 20180521
  Transmission Date: 20180711
  Serious: Yes (Other)
  Sender: FDA-Public Use
  Company Number: GB-TEVA-2017-GB-836710

PATIENT
  Age: 24 Year
  Sex: Female

DRUGS (7)
  1. IBUPROFEN. [Concomitant]
     Active Substance: IBUPROFEN
  2. DIAZEPAM. [Concomitant]
     Active Substance: DIAZEPAM
  3. SUMATRIPTAN. [Suspect]
     Active Substance: SUMATRIPTAN
     Indication: HEADACHE
  4. CYCLIZINE [Concomitant]
     Active Substance: CYCLIZINE
  5. SUMATRIPTAN. [Suspect]
     Active Substance: SUMATRIPTAN
     Indication: MIGRAINE
     Route: 048
     Dates: start: 20171114, end: 20171114
  6. PARACETAMOL [Concomitant]
     Active Substance: ACETAMINOPHEN
  7. TEVA UK CO-CODAMOL [Concomitant]

REACTIONS (9)
  - Feeling abnormal [Recovering/Resolving]
  - Chest discomfort [Recovering/Resolving]
  - Drug ineffective [Unknown]
  - Dyspnoea [Recovered/Resolved]
  - Urticaria [Recovered/Resolved]
  - Meningitis [Unknown]
  - Migraine [Not Recovered/Not Resolved]
  - Vision blurred [Recovering/Resolving]
  - Paraesthesia [Recovering/Resolving]

NARRATIVE: CASE EVENT DATE: 20171114
